FAERS Safety Report 14068343 (Version 5)
Quarter: 2017Q4

REPORT INFORMATION
  Report Type: Report from Study
  Country: None (occurrence: ES)
  Receive Date: 20171010
  Receipt Date: 20171204
  Transmission Date: 20180321
  Serious: Yes (Hospitalization)
  Sender: FDA-Public Use
  Company Number: ES-ABBVIE-17K-144-2125279-00

PATIENT
  Age: 79 Year
  Sex: Male
  Weight: 80 kg

DRUGS (1)
  1. DUODOPA [Suspect]
     Active Substance: CARBIDOPA\LEVODOPA
     Indication: PARKINSON^S DISEASE
     Route: 050
     Dates: start: 20170706

REACTIONS (6)
  - Urosepsis [Recovered/Resolved]
  - General physical health deterioration [Not Recovered/Not Resolved]
  - Urosepsis [Recovered/Resolved]
  - Gait inability [Recovering/Resolving]
  - Muscular weakness [Recovering/Resolving]
  - Escherichia bacteraemia [Unknown]

NARRATIVE: CASE EVENT DATE: 2017
